FAERS Safety Report 8915104 (Version 1)
Quarter: 2012Q4

REPORT INFORMATION
  Report Type: 
  Country: US (occurrence: US)
  Receive Date: 20121119
  Receipt Date: 20121119
  Transmission Date: 20130627
  Serious: Yes (Hospitalization, Other)
  Sender: FDA-Public Use
  Company Number: US-BAYER-2012-118790

PATIENT
  Age: 31 Year
  Sex: Female
  Weight: 145.13 kg

DRUGS (14)
  1. YAZ [Suspect]
     Dosage: UNK
     Dates: start: 200611, end: 200907
  2. YASMIN [Suspect]
     Dosage: UNK
     Dates: start: 200206, end: 2003
  3. PANTOPRAZOLE [Concomitant]
  4. METRONIDAZOLE [Concomitant]
     Dosage: UNK
     Route: 067
  5. ASA [Concomitant]
     Dosage: UNK
     Dates: start: 20090709
  6. ALBUTEROL [Concomitant]
  7. ROBITUSSIN DM [Concomitant]
  8. CLARITIN [Concomitant]
  9. ANTIBIOTICS [Concomitant]
     Dosage: UNK
  10. OCEAN SPRAY [Concomitant]
  11. AFRIN [AMINOAC AC,BENZALK CHLORIDE,OXYMETAZ HCL,PHENYLMERCURIC ACE [Concomitant]
  12. CALCIUM CITRATE [Concomitant]
  13. LEVAQUIN [Concomitant]
  14. ADVAIR [Concomitant]

REACTIONS (4)
  - Pulmonary embolism [None]
  - Deep vein thrombosis [None]
  - Thrombophlebitis superficial [None]
  - Haemarthrosis [None]
